FAERS Safety Report 25367173 (Version 1)
Quarter: 2025Q2

REPORT INFORMATION
  Report Type: Spontaneous
  Country: DK (occurrence: DK)
  Receive Date: 20250528
  Receipt Date: 20250528
  Transmission Date: 20250717
  Serious: Yes (Hospitalization, Other)
  Sender: AMGEN
  Company Number: DK-AMGEN-DNKSP2025089481

PATIENT
  Age: 3 Year
  Sex: Female
  Weight: 15.3 kg

DRUGS (7)
  1. RAVICTI [Suspect]
     Active Substance: GLYCEROL PHENYLBUTYRATE
     Indication: Ornithine transcarbamoylase deficiency
     Route: 065
     Dates: start: 20240716
  2. RAVICTI [Suspect]
     Active Substance: GLYCEROL PHENYLBUTYRATE
     Dosage: 282 MILLIGRAM/KILOGRAM, QD
     Route: 065
  3. RAVICTI [Suspect]
     Active Substance: GLYCEROL PHENYLBUTYRATE
     Dosage: 300 MILLIGRAM/KILOGRAM, QD
     Route: 065
     Dates: start: 20241112
  4. RAVICTI [Suspect]
     Active Substance: GLYCEROL PHENYLBUTYRATE
     Dosage: 337 MILLIGRAM/KILOGRAM, QD
     Route: 065
     Dates: start: 20241119
  5. RAVICTI [Suspect]
     Active Substance: GLYCEROL PHENYLBUTYRATE
     Dosage: 350 MILLIGRAM/KILOGRAM, QD
     Route: 065
     Dates: start: 20241211
  6. RAVICTI [Suspect]
     Active Substance: GLYCEROL PHENYLBUTYRATE
     Dosage: 360 MILLIGRAM/KILOGRAM, QD
     Route: 065
     Dates: start: 20250130
  7. SODIUM BENZOATE [Concomitant]
     Active Substance: SODIUM BENZOATE
     Route: 065

REACTIONS (3)
  - Ammonia increased [Unknown]
  - Amino acid level abnormal [Unknown]
  - Product storage error [Unknown]

NARRATIVE: CASE EVENT DATE: 20241029
